FAERS Safety Report 7426508-2 (Version None)
Quarter: 2011Q2

REPORT INFORMATION
  Report Type: 
  Country: None (occurrence: None)
  Receive Date: 20110420
  Receipt Date: 20110415
  Transmission Date: 20111010
  Serious: Yes (Hospitalization)
  Sender: FDA-Public Use
  Company Number: KR-PFIZER INC-2011084028

PATIENT
  Age: 49 Year
  Sex: Female

DRUGS (3)
  1. SUNITINIB MALATE [Suspect]
     Indication: METASTASES TO BONE
  2. FAMOTIDINE [Concomitant]
     Dosage: UNK
     Dates: start: 20110408
  3. SUNITINIB MALATE [Suspect]
     Indication: RENAL CELL CARCINOMA
     Dosage: 50 MG, 1X/DAY
     Route: 048
     Dates: start: 20101228

REACTIONS (1)
  - SUBARACHNOID HAEMORRHAGE [None]
